FAERS Safety Report 10659050 (Version 1)
Quarter: 2014Q4

REPORT INFORMATION
  Report Type: Spontaneous
  Country: US (occurrence: US)
  Receive Date: 20141217
  Receipt Date: 20141217
  Transmission Date: 20150529
  Serious: No
  Sender: FDA-Public Use
  Company Number: US-GLAXOSMITHKLINE-A1073362A

PATIENT

DRUGS (1)
  1. VOTRIENT [Suspect]
     Active Substance: PAZOPANIB HYDROCHLORIDE
     Indication: RENAL CANCER
     Dosage: 200 MG AT 800MG DAILY
     Route: 065

REACTIONS (5)
  - Weight decreased [Unknown]
  - Seasonal allergy [Unknown]
  - Dysgeusia [Unknown]
  - Eye pruritus [Unknown]
  - Diarrhoea [Unknown]
